FAERS Safety Report 10216459 (Version 1)
Quarter: 2014Q2

REPORT INFORMATION
  Report Type: Spontaneous
  Country: FR (occurrence: FR)
  Receive Date: 20140604
  Receipt Date: 20140604
  Transmission Date: 20141212
  Serious: Yes (Death, Hospitalization, Other)
  Sender: FDA-Public Use
  Company Number: FR-ACTAVIS-2014-11671

PATIENT
  Age: 70 Year
  Sex: Male

DRUGS (6)
  1. CAPECITABINE (UNKNOWN) [Suspect]
     Indication: RECTAL ADENOCARCINOMA
     Dosage: 2600 G DAILY IN TWO INTAKES FIVE DAYS PER WEEK
     Route: 048
     Dates: start: 20080411
  2. SPIRONOLACTONE-ALTIZIDE (UNKNOWN) [Suspect]
     Indication: HYPERTENSION
     Dosage: UNK
     Route: 065
  3. IRINOTECAN (UNKNOWN) [Suspect]
     Indication: RECTAL ADENOCARCINOMA
     Dosage: UNK
     Route: 065
     Dates: start: 2009
  4. BEVACIZUMAB [Suspect]
     Indication: RECTAL ADENOCARCINOMA
     Dosage: UNK
     Route: 065
     Dates: start: 2009
  5. GLICLAZIDE [Concomitant]
     Indication: TYPE 2 DIABETES MELLITUS
     Dosage: UNK
     Route: 065
  6. FENOFIBRATE [Concomitant]
     Indication: DYSLIPIDAEMIA
     Dosage: UNK
     Route: 065

REACTIONS (15)
  - Candida sepsis [Fatal]
  - Streptococcal sepsis [Unknown]
  - Febrile bone marrow aplasia [Unknown]
  - Necrotising oesophagitis [Unknown]
  - Renal failure acute [Unknown]
  - Mucosal inflammation [Unknown]
  - Lactic acidosis [Unknown]
  - Colitis ulcerative [Unknown]
  - Bacterial translocation [Unknown]
  - Paralysis [Unknown]
  - Vomiting [Unknown]
  - Diarrhoea [Unknown]
  - Palmar-plantar erythrodysaesthesia syndrome [Unknown]
  - Asthenia [Unknown]
  - Drug-disease interaction [Fatal]
